FAERS Safety Report 17096066 (Version 1)
Quarter: 2019Q4

REPORT INFORMATION
  Report Type: Spontaneous
  Country: BR (occurrence: BR)
  Receive Date: 20191202
  Receipt Date: 20191202
  Transmission Date: 20200122
  Serious: Yes (Other)
  Sender: FDA-Public Use
  Company Number: BR-SA-2019SA328999

PATIENT
  Age: 52 Year
  Sex: Female

DRUGS (1)
  1. ALLEGRA-D [Suspect]
     Active Substance: FEXOFENADINE\PSEUDOEPHEDRINE
     Indication: SINUSITIS
     Dosage: 1 DF, QD
     Route: 048
     Dates: start: 20191105, end: 20191106

REACTIONS (8)
  - Poisoning [Recovering/Resolving]
  - Discomfort [Unknown]
  - Rash macular [Recovering/Resolving]
  - Blister [Recovering/Resolving]
  - Burning sensation [Unknown]
  - Dyspnoea [Unknown]
  - Condition aggravated [Recovering/Resolving]
  - Oropharyngeal discomfort [Unknown]

NARRATIVE: CASE EVENT DATE: 20191108
